FAERS Safety Report 10875026 (Version 2)
Quarter: 2015Q2

REPORT INFORMATION
  Report Type: Report from Study
  Country: TR (occurrence: TR)
  Receive Date: 20150227
  Receipt Date: 20150410
  Transmission Date: 20150821
  Serious: Yes (Hospitalization)
  Sender: FDA-Public Use
  Company Number: PHHY2015TR020847

PATIENT
  Age: 2 Year
  Sex: Male
  Weight: 12 kg

DRUGS (2)
  1. EXJADE [Suspect]
     Active Substance: DEFERASIROX
     Dosage: 250 MG, QD
     Route: 048
     Dates: start: 20150320
  2. EXJADE [Suspect]
     Active Substance: DEFERASIROX
     Indication: THALASSAEMIA BETA
     Dosage: 250 MG, QD
     Route: 048
     Dates: start: 2014, end: 20150205

REACTIONS (3)
  - Hepatic enzyme increased [Recovered/Resolved]
  - Liver disorder [Unknown]
  - Bronchitis [Recovered/Resolved]

NARRATIVE: CASE EVENT DATE: 20150205
